FAERS Safety Report 10028108 (Version 4)
Quarter: 2014Q2

REPORT INFORMATION
  Report Type: Spontaneous
  Country: JP (occurrence: JP)
  Receive Date: 20140321
  Receipt Date: 20140616
  Transmission Date: 20141212
  Serious: Yes (Other)
  Sender: FDA-Public Use
  Company Number: JP-OTSUKA-JP-2014-12639

PATIENT
  Age: 87 Year
  Sex: Male

DRUGS (4)
  1. SAMSCA [Suspect]
     Indication: OEDEMA DUE TO CARDIAC DISEASE
     Dosage: 7.5 MG MILLIGRAM(S), DAILY DOSE
     Route: 048
     Dates: end: 20140313
  2. SAMSCA [Suspect]
     Dosage: 15 MG MILLIGRAM(S), DAILY DOSE
     Route: 048
     Dates: start: 20140314
  3. LASIX [Suspect]
     Indication: PRODUCT USED FOR UNKNOWN INDICATION
     Dosage: 40 MG MILLIGRAM(S), DAILY DOSE
     Route: 065
  4. LASIX [Suspect]
     Dosage: 20 MG MILLIGRAM(S), DAILY DOSE
     Route: 065

REACTIONS (1)
  - Blood potassium decreased [Recovering/Resolving]
